FAERS Safety Report 4687312-1 (Version None)
Quarter: 2005Q2

REPORT INFORMATION
  Report Type: 
  Country: None (occurrence: None)
  Receive Date: 20050608
  Receipt Date: 20050517
  Transmission Date: 20051028
  Serious: Yes (Hospitalization, Other)
  Sender: FDA-Public Use
  Company Number: 2005BI009765

PATIENT
  Age: 52 Year
  Sex: Male

DRUGS (3)
  1. AVONEX [Suspect]
     Indication: MULTIPLE SCLEROSIS
     Dosage: 30 UG; QW; IM
     Route: 030
     Dates: start: 19970101
  2. AVONEX [Suspect]
     Indication: MULTIPLE SCLEROSIS
     Dosage: 30 UG; QW; IM
     Route: 030
  3. NOVANTRONE [Concomitant]

REACTIONS (8)
  - CARDIOMYOPATHY [None]
  - CEREBRAL ATROPHY [None]
  - CONDITION AGGRAVATED [None]
  - DRUG TOXICITY [None]
  - FALL [None]
  - HYPOTHERMIA [None]
  - MENTAL STATUS CHANGES [None]
  - MULTIPLE SCLEROSIS [None]
